FAERS Safety Report 9633512 (Version 2)
Quarter: 2014Q1

REPORT INFORMATION
  Report Type: Report from Study
  Country: DE (occurrence: DE)
  Receive Date: 20131021
  Receipt Date: 20140116
  Transmission Date: 20141002
  Serious: No
  Sender: FDA-Public Use
  Company Number: PHHO2013DE013461

PATIENT
  Sex: 0

DRUGS (3)
  1. FTY 720 [Suspect]
     Indication: MULTIPLE SCLEROSIS
     Dosage: 0.5 MG, QD
     Route: 048
     Dates: start: 20110310
  2. LAMUNA [Concomitant]
     Indication: CONTRACEPTION
     Dosage: 30 MG, QD
     Dates: start: 20070415
  3. L-THYROXINE [Concomitant]
     Indication: HYPOTHYROIDISM
     Dosage: 25 MG, QD
     Dates: start: 20130430

REACTIONS (1)
  - Enterocolitis [Not Recovered/Not Resolved]
